FAERS Safety Report 24772430 (Version 2)
Quarter: 2024Q4

REPORT INFORMATION
  Report Type: Spontaneous
  Country: US (occurrence: US)
  Receive Date: 20241224
  Receipt Date: 20241230
  Transmission Date: 20250115
  Serious: Yes (Hospitalization)
  Sender: AMGEN
  Company Number: US-AMGEN-USASP2024250214

PATIENT
  Age: 40 Year
  Sex: Female

DRUGS (6)
  1. RIABNI [Suspect]
     Active Substance: RITUXIMAB-ARRX
     Indication: Thrombotic microangiopathy
     Dosage: 650 MILLIGRAM, Q3WK
     Route: 065
     Dates: start: 20241031
  2. RIABNI [Suspect]
     Active Substance: RITUXIMAB-ARRX
     Indication: Thrombotic thrombocytopenic purpura
     Dosage: UNK
     Route: 065
  3. RIABNI [Suspect]
     Active Substance: RITUXIMAB-ARRX
     Dosage: UNK
     Route: 065
  4. RIABNI [Suspect]
     Active Substance: RITUXIMAB-ARRX
     Dosage: UNK
     Route: 065
  5. RIABNI [Suspect]
     Active Substance: RITUXIMAB-ARRX
     Dosage: UNK
     Route: 065
  6. RIABNI [Suspect]
     Active Substance: RITUXIMAB-ARRX
     Dosage: UNK
     Route: 065

REACTIONS (2)
  - Unevaluable event [Unknown]
  - Off label use [Unknown]

NARRATIVE: CASE EVENT DATE: 20241031
